FAERS Safety Report 5675094-6 (Version None)
Quarter: 2008Q1

REPORT INFORMATION
  Report Type: 
  Country: None (occurrence: None)
  Receive Date: 20080320
  Receipt Date: 20080311
  Transmission Date: 20080703
  Serious: Yes (Hospitalization)
  Sender: FDA-Public Use
  Company Number: GB-JNJFOC-20080302797

PATIENT
  Age: 66 Year
  Sex: Female

DRUGS (4)
  1. GALANTAMINE HYDROBROMIDE [Suspect]
     Indication: DRUG USE FOR UNKNOWN INDICATION
  2. CO-CODAMOL [Concomitant]
  3. OILATUM [Concomitant]
  4. OMEPRAZOLE [Concomitant]

REACTIONS (1)
  - DUODENAL ULCER PERFORATION [None]
